FAERS Safety Report 6123079-8 (Version None)
Quarter: 2009Q1

REPORT INFORMATION
  Report Type: 
  Country: None (occurrence: None)
  Receive Date: 20090318
  Receipt Date: 20090306
  Transmission Date: 20090719
  Serious: Yes (Other)
  Sender: FDA-Public Use
  Company Number: US-PFIZER INC-2009164537

PATIENT
  Sex: Male
  Weight: 69 kg

DRUGS (1)
  1. CHANTIX [Suspect]
     Indication: SMOKING CESSATION THERAPY
     Dates: start: 20090123, end: 20090131

REACTIONS (6)
  - BACK PAIN [None]
  - FEELING ABNORMAL [None]
  - PELVIC PAIN [None]
  - PRODUCT QUALITY ISSUE [None]
  - RENAL PAIN [None]
  - SOMNOLENCE [None]
